FAERS Safety Report 5988743-X (Version None)
Quarter: 2008Q4

REPORT INFORMATION
  Report Type: 
  Country: None (occurrence: None)
  Receive Date: 20081208
  Receipt Date: 20081208
  Transmission Date: 20090506
  Serious: No
  Sender: FDA-Public Use
  Company Number: None

PATIENT
  Age: 28 Year
  Sex: Male
  Weight: 74.8435 kg

DRUGS (1)
  1. PROPECIA [Suspect]
     Indication: ALOPECIA
     Dosage: 1 MG .25 5MG, DAILY PO
     Route: 048
     Dates: start: 20080710, end: 20081030

REACTIONS (3)
  - DEPRESSION [None]
  - LOSS OF LIBIDO [None]
  - SEXUAL DYSFUNCTION [None]
